FAERS Safety Report 16363572 (Version 1)
Quarter: 2019Q2

REPORT INFORMATION
  Report Type: Spontaneous
  Country: US (occurrence: US)
  Receive Date: 20190528
  Receipt Date: 20190528
  Transmission Date: 20190711
  Serious: No
  Sender: FDA-Public Use
  Company Number: US-AKRON, INC.-2067496

PATIENT
  Sex: Male

DRUGS (1)
  1. VANCOMYCIN HCL 125 MG CAPSULES USP [Suspect]
     Active Substance: VANCOMYCIN HYDROCHLORIDE

REACTIONS (5)
  - Insomnia [Not Recovered/Not Resolved]
  - Drug ineffective [Not Recovered/Not Resolved]
  - Fatigue [Not Recovered/Not Resolved]
  - Clostridium difficile colitis [Not Recovered/Not Resolved]
  - Vomiting [Not Recovered/Not Resolved]
